FAERS Safety Report 19088099 (Version 3)
Quarter: 2021Q2

REPORT INFORMATION
  Report Type: Report from Study
  Country: PA (occurrence: PA)
  Receive Date: 20210402
  Receipt Date: 20210526
  Transmission Date: 20210717
  Serious: Yes (Other)
  Sender: FDA-Public Use
  Company Number: PA-INCYTE CORPORATION-2021IN002767

PATIENT

DRUGS (1)
  1. JAKAVI [Suspect]
     Active Substance: RUXOLITINIB
     Indication: PRIMARY MYELOFIBROSIS
     Dosage: 30 MG, BID
     Route: 048
     Dates: start: 20201104

REACTIONS (15)
  - Urinary incontinence [Unknown]
  - Pruritus [Unknown]
  - Malaise [Unknown]
  - Asthenia [Unknown]
  - Decreased appetite [Unknown]
  - Enuresis [Unknown]
  - Leukaemia [Unknown]
  - Fall [Unknown]
  - Haemorrhage urinary tract [Unknown]
  - Laziness [Unknown]
  - Somnolence [Unknown]
  - Fatigue [Unknown]
  - Product dose omission in error [Unknown]
  - Myalgia [Unknown]
  - Hypertension [Unknown]

NARRATIVE: CASE EVENT DATE: 202103
